FAERS Safety Report 16573852 (Version 3)
Quarter: 2019Q3

REPORT INFORMATION
  Report Type: Spontaneous
  Country: JP (occurrence: JP)
  Receive Date: 20190715
  Receipt Date: 20190808
  Transmission Date: 20191004
  Serious: Yes (Other)
  Sender: FDA-Public Use
  Company Number: JP-009507513-1906JPN002341J

PATIENT
  Age: 72 Year
  Sex: Male

DRUGS (4)
  1. ERELSA TABLETS 50MG [Suspect]
     Active Substance: ELBASVIR
     Indication: CHRONIC HEPATITIS C
     Dosage: 50 MILLIGRAM, QD
     Route: 048
     Dates: start: 20171125, end: 20180216
  2. GRAZYNA TABLETS 50MG [Suspect]
     Active Substance: GRAZOPREVIR
     Indication: CHRONIC HEPATITIS C
     Dosage: 100 MILLIGRAM, QD
     Route: 048
     Dates: start: 20171125, end: 20180216
  3. URSO [Concomitant]
     Active Substance: URSODIOL
     Indication: CHRONIC HEPATITIS C
     Dosage: 1 DOSAGE FORM, TID
     Route: 048
     Dates: end: 201807
  4. LIVACT [Concomitant]
     Active Substance: AMINO ACIDS
     Indication: CHRONIC HEPATITIS C
     Dosage: 1 DOSAGE FORM, TID
     Route: 048
     Dates: end: 201806

REACTIONS (2)
  - Cytomegalovirus infection [Recovered/Resolved]
  - Liver disorder [Recovered/Resolved]

NARRATIVE: CASE EVENT DATE: 20180216
